FAERS Safety Report 23538094 (Version 1)
Quarter: 2024Q1

REPORT INFORMATION
  Report Type: Other
  Country: US (occurrence: None)
  Receive Date: 20240219
  Receipt Date: 20240219
  Transmission Date: 20240409
  Serious: Yes (Other)
  Sender: FDA-Public Use
  Company Number: US-ROCHE-3508853

PATIENT

DRUGS (7)
  1. RITUXIMAB [Suspect]
     Active Substance: RITUXIMAB
     Indication: B-cell lymphoma refractory
     Route: 065
  2. SELINEXOR [Suspect]
     Active Substance: SELINEXOR
     Indication: B-cell lymphoma refractory
     Dosage: DOSE LEVEL -1
     Route: 065
  3. SELINEXOR [Suspect]
     Active Substance: SELINEXOR
     Dosage: DOSE LEVEL -1
     Route: 065
  4. SELINEXOR [Suspect]
     Active Substance: SELINEXOR
     Dosage: DOSE LEVEL -2
     Route: 065
  5. IFOSFAMIDE [Suspect]
     Active Substance: IFOSFAMIDE
     Indication: B-cell lymphoma refractory
     Route: 065
  6. CARBOPLATIN [Suspect]
     Active Substance: CARBOPLATIN
     Indication: B-cell lymphoma refractory
     Route: 065
  7. ETOPOSIDE [Suspect]
     Active Substance: ETOPOSIDE
     Indication: B-cell lymphoma refractory
     Route: 065

REACTIONS (52)
  - Febrile neutropenia [Unknown]
  - Nausea [Unknown]
  - Vomiting [Unknown]
  - Diarrhoea [Unknown]
  - Platelet count decreased [Unknown]
  - Lymphocyte count decreased [Unknown]
  - Neutrophil count decreased [Unknown]
  - Anaemia [Unknown]
  - Hyponatraemia [Unknown]
  - Alanine aminotransferase increased [Unknown]
  - Mental status changes [Unknown]
  - Embolism [Unknown]
  - Aspartate aminotransferase increased [Unknown]
  - Dehydration [Unknown]
  - Asthenia [Unknown]
  - Coronavirus infection [Unknown]
  - Hypertension [Unknown]
  - Hypotension [Unknown]
  - Sepsis [Unknown]
  - White blood cell count decreased [Unknown]
  - Syncope [Unknown]
  - Back pain [Unknown]
  - Abdominal pain [Unknown]
  - Hypophosphataemia [Unknown]
  - Abdominal infection [Unknown]
  - Blood creatinine increased [Unknown]
  - Hypoalbuminaemia [Unknown]
  - Hypocalcaemia [Unknown]
  - Decreased appetite [Unknown]
  - Fatigue [Unknown]
  - Constipation [Unknown]
  - Hypokalaemia [Unknown]
  - Peripheral sensory neuropathy [Unknown]
  - Hyperglycaemia [Unknown]
  - Hypomagnesaemia [Unknown]
  - Alopecia [Unknown]
  - Blood alkaline phosphatase increased [Unknown]
  - Blood bilirubin increased [Unknown]
  - Dyspnoea [Unknown]
  - Pyrexia [Unknown]
  - Gastrooesophageal reflux disease [Unknown]
  - Bone pain [Unknown]
  - Confusional state [Unknown]
  - Chills [Unknown]
  - Cough [Unknown]
  - Oedema peripheral [Unknown]
  - Epistaxis [Unknown]
  - Fall [Unknown]
  - Gait disturbance [Unknown]
  - Hypermagnesaemia [Unknown]
  - Pollakiuria [Unknown]
  - Urinary incontinence [Unknown]
